FAERS Safety Report 24887216 (Version 3)
Quarter: 2025Q3

REPORT INFORMATION
  Report Type: Spontaneous
  Country: JP (occurrence: JP)
  Receive Date: 20250127
  Receipt Date: 20250809
  Transmission Date: 20251020
  Serious: Yes (Hospitalization, Other)
  Sender: ALEXION PHARMACEUTICALS
  Company Number: JP-ASTRAZENECA-250005780_013120_P_1

PATIENT
  Age: 81 Year
  Sex: Male
  Weight: 78 kg

DRUGS (27)
  1. DURVALUMAB [Suspect]
     Active Substance: DURVALUMAB
     Indication: Bile duct cancer
  2. CISPLATIN [Concomitant]
     Active Substance: CISPLATIN
     Indication: Bile duct cancer
     Route: 065
  3. GEMCITABINE HYDROCHLORIDE [Concomitant]
     Active Substance: GEMCITABINE HYDROCHLORIDE
     Indication: Bile duct cancer
     Dates: start: 20240726, end: 20240726
  4. LEVOTHYROXINE [Concomitant]
     Active Substance: LEVOTHYROXINE
     Dosage: 50 MICROGRAM, QD, AFTER BREAKFAST, WITH DOSE ADJUSTED (THYRADIN S)
     Dates: start: 20241028
  5. LEVOTHYROXINE [Concomitant]
     Active Substance: LEVOTHYROXINE
     Dosage: 25 MICROGRAM, QD, AFTER BREAKFAST (THYRADIN S)
     Dates: start: 20240930, end: 20241027
  6. LEVOTHYROXINE [Concomitant]
     Active Substance: LEVOTHYROXINE
     Dosage: 25 MICROGRAM, QD, AFTER BREAKFAST (THYRADIN S)
     Dates: start: 20241125
  7. CISPLATIN [Concomitant]
     Active Substance: CISPLATIN
     Dosage: 43 MILLIGRAM, QD
     Route: 065
     Dates: start: 20240726, end: 20240726
  8. CISPLATIN [Concomitant]
     Active Substance: CISPLATIN
     Dosage: 43 MILLIGRAM, QD
     Route: 065
     Dates: start: 20240802, end: 20240802
  9. CISPLATIN [Concomitant]
     Active Substance: CISPLATIN
     Dosage: 43 MILLIGRAM, QD
     Route: 065
     Dates: start: 20240816, end: 20240816
  10. CISPLATIN [Concomitant]
     Active Substance: CISPLATIN
     Dosage: 43 MILLIGRAM, QD
     Route: 065
     Dates: start: 20240913, end: 20240913
  11. CISPLATIN [Concomitant]
     Active Substance: CISPLATIN
     Dosage: 39 MILLIGRAM, QD
     Route: 065
     Dates: start: 20240830, end: 20240830
  12. CISPLATIN [Concomitant]
     Active Substance: CISPLATIN
     Dosage: 39 MILLIGRAM, QD
     Route: 065
     Dates: start: 20240927, end: 20240927
  13. CISPLATIN [Concomitant]
     Active Substance: CISPLATIN
     Dosage: 30.188 MILLIGRAM, QD
     Route: 065
     Dates: start: 20241011, end: 20241011
  14. CISPLATIN [Concomitant]
     Active Substance: CISPLATIN
     Dosage: 30.188 MILLIGRAM, QD
     Route: 065
     Dates: start: 20241025, end: 20241025
  15. CISPLATIN [Concomitant]
     Active Substance: CISPLATIN
     Dosage: 30.188 MILLIGRAM, QD
     Route: 065
     Dates: start: 20241108, end: 20241108
  16. CISPLATIN [Concomitant]
     Active Substance: CISPLATIN
     Dosage: 30.188 MILLIGRAM, QD
     Route: 065
     Dates: start: 20241225, end: 20241225
  17. GEMCITABINE [Concomitant]
     Active Substance: GEMCITABINE
     Indication: Bile duct cancer
     Dates: start: 20240830, end: 20240830
  18. GEMCITABINE [Concomitant]
     Active Substance: GEMCITABINE
     Dosage: 1700 MILLIGRAM, Q2W
     Dates: start: 20240726, end: 20241225
  19. GEMCITABINE [Concomitant]
     Active Substance: GEMCITABINE
     Dates: start: 20240726, end: 20240726
  20. GEMCITABINE [Concomitant]
     Active Substance: GEMCITABINE
     Dates: start: 20240802, end: 20240802
  21. GEMCITABINE [Concomitant]
     Active Substance: GEMCITABINE
     Dates: start: 20240816, end: 20240816
  22. GEMCITABINE [Concomitant]
     Active Substance: GEMCITABINE
     Dates: start: 20240913, end: 20240913
  23. GEMCITABINE [Concomitant]
     Active Substance: GEMCITABINE
     Dates: start: 20240927, end: 20240927
  24. GEMCITABINE [Concomitant]
     Active Substance: GEMCITABINE
     Dates: start: 20241011, end: 20241011
  25. GEMCITABINE [Concomitant]
     Active Substance: GEMCITABINE
     Dates: start: 20241025, end: 20241025
  26. GEMCITABINE [Concomitant]
     Active Substance: GEMCITABINE
     Dates: start: 20241108, end: 20241108
  27. GEMCITABINE [Concomitant]
     Active Substance: GEMCITABINE
     Dates: start: 20241225, end: 20241225

REACTIONS (2)
  - Adrenal insufficiency [Recovering/Resolving]
  - Pyrexia [Recovered/Resolved]

NARRATIVE: CASE EVENT DATE: 20241122
